FAERS Safety Report 24074036 (Version 1)
Quarter: 2024Q3

REPORT INFORMATION
  Report Type: Spontaneous
  Country: US (occurrence: None)
  Receive Date: 20240709
  Receipt Date: 20240709
  Transmission Date: 20241017
  Serious: Yes (Other)
  Sender: Public
  Company Number: None

PATIENT
  Age: 61 Year
  Sex: Female
  Weight: 70.31 kg

DRUGS (1)
  1. SEMAGLUTIDE [Suspect]
     Active Substance: SEMAGLUTIDE
     Indication: Obesity
     Dosage: WEEKLY SUB Q?DURATION 2-3 MONTH
     Route: 058
     Dates: start: 20240217, end: 20240417

REACTIONS (4)
  - Malaise [None]
  - Blood glucose decreased [None]
  - Nausea [None]
  - Diarrhoea [None]
